FAERS Safety Report 6600142-6 (Version None)
Quarter: 2010Q1

REPORT INFORMATION
  Report Type: 
  Country: None (occurrence: None)
  Receive Date: 20100224
  Receipt Date: 20100217
  Transmission Date: 20100710
  Serious: Yes (Other)
  Sender: FDA-Public Use
  Company Number: B0635716A

PATIENT
  Sex: Female

DRUGS (1)
  1. NICABATE MINI LOZENGES [Suspect]
     Indication: SMOKING CESSATION THERAPY
     Route: 048
     Dates: start: 20100210

REACTIONS (1)
  - ANOSMIA [None]
